FAERS Safety Report 10065901 (Version 2)
Quarter: 2014Q2

REPORT INFORMATION
  Report Type: Spontaneous
  Country: US (occurrence: US)
  Receive Date: 20140408
  Receipt Date: 20140408
  Transmission Date: 20141212
  Serious: No
  Sender: FDA-Public Use
  Company Number: US-ASTELLAS-2014US000228

PATIENT
  Age: 84 Year
  Sex: Female

DRUGS (1)
  1. MYRBETRIQ [Suspect]
     Indication: HYPERTONIC BLADDER
     Dosage: 25 MG, DAILY
     Route: 048
     Dates: start: 20131223

REACTIONS (2)
  - Drug ineffective [Unknown]
  - Dizziness [Recovered/Resolved]
